FAERS Safety Report 24935730 (Version 1)
Quarter: 2025Q1

REPORT INFORMATION
  Report Type: Report from Study
  Country: US (occurrence: US)
  Receive Date: 20250206
  Receipt Date: 20250206
  Transmission Date: 20250408
  Serious: Yes (Hospitalization)
  Sender: EXELIXIS
  Company Number: US-EXELIXIS-CABO-24080550

PATIENT
  Sex: Female

DRUGS (10)
  1. CABOMETYX [Suspect]
     Active Substance: CABOZANTINIB S-MALATE
     Indication: Neurofibromatosis
     Dosage: 60 MG, QD
     Route: 048
     Dates: start: 20240625
  2. CABOMETYX [Suspect]
     Active Substance: CABOZANTINIB S-MALATE
     Dosage: 60 MG, QD
     Route: 048
  3. CIPROFLOXACIN\DEXAMETHASONE [Concomitant]
     Active Substance: CIPROFLOXACIN\DEXAMETHASONE
  4. HYDROXYZINE HYDROCHLORIDE [Concomitant]
     Active Substance: HYDROXYZINE HYDROCHLORIDE
  5. KETOROLAC [Concomitant]
     Active Substance: KETOROLAC TROMETHAMINE
  6. LEVOTHYROXINE [Concomitant]
     Active Substance: LEVOTHYROXINE
  7. MEKINIST [Concomitant]
     Active Substance: TRAMETINIB DIMETHYL SULFOXIDE
  8. OMEPRAZOLE [Concomitant]
     Active Substance: OMEPRAZOLE
  9. VENLAFAXINE [Concomitant]
     Active Substance: VENLAFAXINE HYDROCHLORIDE
  10. VYEPTI [Concomitant]
     Active Substance: EPTINEZUMAB-JJMR

REACTIONS (4)
  - Diarrhoea [Unknown]
  - Nausea [Unknown]
  - Headache [Unknown]
  - Off label use [Unknown]
